FAERS Safety Report 22169647 (Version 1)
Quarter: 2023Q2

REPORT INFORMATION
  Report Type: Spontaneous
  Country: NL (occurrence: NL)
  Receive Date: 20230404
  Receipt Date: 20230404
  Transmission Date: 20230722
  Serious: Yes (Other)
  Sender: FDA-Public Use
  Company Number: None

PATIENT
  Age: 28 Year
  Sex: Female
  Weight: 80 kg

DRUGS (4)
  1. RHOPHYLAC [Suspect]
     Active Substance: HUMAN RHO(D) IMMUNE GLOBULIN
     Indication: Prophylaxis against Rh isoimmunisation
     Dosage: 1 DOSAGE FORM
     Route: 030
     Dates: start: 20230223
  2. RHOPHYLAC [Suspect]
     Active Substance: HUMAN RHO(D) IMMUNE GLOBULIN
     Indication: Prophylaxis against Rh isoimmunisation
     Dosage: 1 DOSAGE FORM
     Route: 030
     Dates: start: 20230223
  3. RHOPHYLAC [Suspect]
     Active Substance: HUMAN RHO(D) IMMUNE GLOBULIN
     Indication: Abdominal injury
     Dosage: 1 DOSAGE FORM, TOT
     Route: 030
     Dates: start: 20230313
  4. RHOPHYLAC [Suspect]
     Active Substance: HUMAN RHO(D) IMMUNE GLOBULIN
     Indication: Abdominal injury
     Dosage: 1 DOSAGE FORM, TOT
     Route: 030
     Dates: start: 20230313

REACTIONS (6)
  - Delirium [Recovered/Resolved]
  - Maternal exposure during pregnancy [Recovered/Resolved]
  - Headache [Recovered/Resolved]
  - Maternal exposure during pregnancy [Recovered/Resolved]
  - Night sweats [Recovered/Resolved]
  - Maternal exposure during pregnancy [Recovered/Resolved]
